FAERS Safety Report 4912869-2 (Version None)
Quarter: 2006Q1

REPORT INFORMATION
  Report Type: 
  Country: None (occurrence: None)
  Receive Date: 20060210
  Receipt Date: 20060201
  Transmission Date: 20060701
  Serious: Yes (Death, Hospitalization)
  Sender: FDA-Public Use
  Company Number: B0404921A

PATIENT
  Age: 88 Year
  Sex: Female
  Weight: 27.9416 kg

DRUGS (7)
  1. VALTREX [Suspect]
     Indication: HERPES ZOSTER
     Dosage: 1000 MG / THREE TIMES PER DAY / ORAL
     Route: 048
     Dates: start: 20051208, end: 20051212
  2. CABERGOLINE [Concomitant]
  3. ASPIRIN [Concomitant]
  4. CANDESARTAN CILEXETIL [Concomitant]
  5. URSODEOXYCHOLIC ACID [Concomitant]
  6. NEODOPASTON [Concomitant]
  7. MECOBALAMIN [Concomitant]

REACTIONS (7)
  - ASTHENIA [None]
  - DEHYDRATION [None]
  - DIZZINESS [None]
  - ENCEPHALITIS [None]
  - HALLUCINATION [None]
  - RENAL FAILURE [None]
  - SHOCK [None]
